FAERS Safety Report 25632010 (Version 1)
Quarter: 2025Q3

REPORT INFORMATION
  Report Type: Spontaneous
  Country: JP (occurrence: JP)
  Receive Date: 20250801
  Receipt Date: 20250801
  Transmission Date: 20251020
  Serious: Yes (Death, Hospitalization, Other)
  Sender: ALEXION PHARMACEUTICALS
  Company Number: JP-ASTRAZENECA-202507JPN026533JP

PATIENT
  Age: 74 Year
  Sex: Male

DRUGS (1)
  1. IMFINZI [Suspect]
     Active Substance: DURVALUMAB
     Indication: Squamous cell carcinoma of lung
     Route: 065

REACTIONS (5)
  - General physical health deterioration [Fatal]
  - Immune-mediated lung disease [Not Recovered/Not Resolved]
  - Malignant neoplasm progression [Unknown]
  - Metastases to bone marrow [Unknown]
  - Thrombocytopenia [Unknown]
